FAERS Safety Report 9965174 (Version 1)
Quarter: 2014Q1

REPORT INFORMATION
  Report Type: Report from Study
  Country: US (occurrence: US)
  Receive Date: 20140305
  Receipt Date: 20140305
  Transmission Date: 20141002
  Serious: No
  Sender: FDA-Public Use
  Company Number: US-ABBVIE-13P-163-1124169-00

PATIENT
  Age: 50 Year
  Sex: Female

DRUGS (7)
  1. HUMIRA [Suspect]
     Indication: RHEUMATOID ARTHRITIS
     Dates: start: 20130712
  2. PREDNISONE [Concomitant]
     Indication: RHEUMATOID ARTHRITIS
     Route: 048
  3. HYDROCODONE [Concomitant]
     Indication: PAIN
     Dosage: 5/325MG 1-2 TABLETS EVERY 8 HOURS
     Route: 048
  4. LEUCOVORIN [Concomitant]
     Indication: VITAMIN SUPPLEMENTATION
     Dosage: 5MG DAILY
     Route: 048
  5. COQ10 [Concomitant]
     Indication: VITAMIN SUPPLEMENTATION
     Dosage: EVERY 10 DAILY
     Route: 048
  6. OMEGA 3 [Concomitant]
     Indication: VITAMIN SUPPLEMENTATION
     Dosage: DAILY
     Route: 048
  7. TUMS [Concomitant]
     Indication: GASTRIC DISORDER
     Dosage: DAILY

REACTIONS (1)
  - Vision blurred [Not Recovered/Not Resolved]
